FAERS Safety Report 10895915 (Version 2)
Quarter: 2015Q2

REPORT INFORMATION
  Report Type: Spontaneous
  Country: JP (occurrence: JP)
  Receive Date: 20150307
  Receipt Date: 20150527
  Transmission Date: 20150821
  Serious: Yes (Life-Threatening, Other)
  Sender: FDA-Public Use
  Company Number: PHJP2015JP002106

PATIENT
  Age: 35 Year
  Sex: Female
  Weight: 52 kg

DRUGS (3)
  1. APRESOLINE HYDROCHLORIDE [Suspect]
     Active Substance: HYDRALAZINE HYDROCHLORIDE
     Indication: GESTATIONAL HYPERTENSION
     Dosage: 6 DF, TID
     Route: 048
     Dates: start: 20140715
  2. GEMEPROST [Suspect]
     Active Substance: GEMEPROST
     Indication: PRODUCT USED FOR UNKNOWN INDICATION
     Dosage: UNK
     Route: 065
  3. APRESOLINE HYDROCHLORIDE [Suspect]
     Active Substance: HYDRALAZINE HYDROCHLORIDE
     Dosage: 5.5 MG, UNK
     Route: 048
     Dates: end: 20140804

REACTIONS (15)
  - Hepatic failure [Recovered/Resolved]
  - Premature delivery [Unknown]
  - Maternal exposure during pregnancy [Unknown]
  - HELLP syndrome [Recovered/Resolved]
  - Alanine aminotransferase increased [Unknown]
  - Blood lactate dehydrogenase increased [Unknown]
  - Blood pressure increased [Recovered/Resolved]
  - Renal failure [Recovered/Resolved]
  - Anuria [Not Recovered/Not Resolved]
  - Vomiting [Unknown]
  - Abdominal pain upper [Unknown]
  - Pulmonary oedema [Unknown]
  - Aspartate aminotransferase increased [Unknown]
  - Headache [Unknown]
  - Stillbirth [Unknown]

NARRATIVE: CASE EVENT DATE: 20140805
